FAERS Safety Report 10994338 (Version 2)
Quarter: 2015Q2

REPORT INFORMATION
  Report Type: Spontaneous
  Country: US (occurrence: None)
  Receive Date: 20150403
  Receipt Date: 20150422
  Transmission Date: 20150821
  Serious: Yes (Hospitalization)
  Sender: FDA-Public Use
  Company Number: HYP201503-000032

PATIENT
  Age: 5 Year
  Sex: Male

DRUGS (14)
  1. SPORANOX (ITRACONAZOLE) [Concomitant]
  2. L-CITRULLINE (CITRULLINE) [Concomitant]
  3. LACTINEX (LACTOBACILLUS ACIDOPHILUS) [Concomitant]
  4. KEPPRA [Concomitant]
     Active Substance: LEVETIRACETAM
  5. QVAR (BECLOMETASONE DIPROPIONATE) [Concomitant]
  6. ZOFRAN [Concomitant]
     Active Substance: ONDANSETRON HYDROCHLORIDE
  7. VITAMIN D /00107901/ (ERGOCALCIFEROL) [Concomitant]
  8. SODIUM BENZOATE [Concomitant]
     Active Substance: SODIUM BENZOATE
  9. BACTRIM [Concomitant]
     Active Substance: SULFAMETHOXAZOLE\TRIMETHOPRIM
  10. RAVICTI [Suspect]
     Active Substance: GLYCEROL PHENYLBUTYRATE
     Indication: ORNITHINE TRANSCARBAMOYLASE DEFICIENCY
     Dates: start: 201402
  11. CHOLESTYRAMINE (COLESTYRAMINE) [Concomitant]
  12. RANITIDINE [Concomitant]
     Active Substance: RANITIDINE\RANITIDINE HYDROCHLORIDE
  13. REGLAN [Concomitant]
     Active Substance: METOCLOPRAMIDE HYDROCHLORIDE
  14. TYLENOL [Concomitant]
     Active Substance: ACETAMINOPHEN

REACTIONS (3)
  - Hyperammonaemia [None]
  - Urinary tract infection [None]
  - Seizure [None]

NARRATIVE: CASE EVENT DATE: 20141219
